FAERS Safety Report 7108503-6 (Version None)
Quarter: 2010Q4

REPORT INFORMATION
  Report Type: 
  Country: None (occurrence: None)
  Receive Date: 20101117
  Receipt Date: 20101005
  Transmission Date: 20110411
  Serious: No
  Sender: FDA-Public Use
  Company Number: A0871660A

PATIENT
  Age: 71 Year
  Sex: Female
  Weight: 77.3 kg

DRUGS (1)
  1. VOTRIENT [Suspect]
     Dosage: 400MG TWICE PER DAY
     Route: 048
     Dates: start: 20100629

REACTIONS (8)
  - DECREASED APPETITE [None]
  - DIARRHOEA [None]
  - FATIGUE [None]
  - HYPERTENSION [None]
  - NAUSEA [None]
  - PROTEIN URINE PRESENT [None]
  - RASH ERYTHEMATOUS [None]
  - RASH MACULAR [None]
